FAERS Safety Report 5088031-2 (Version None)
Quarter: 2006Q3

REPORT INFORMATION
  Report Type: 
  Country: None (occurrence: None)
  Receive Date: 20060824
  Receipt Date: 20060814
  Transmission Date: 20061208
  Serious: Yes (Death, Life-Threatening)
  Sender: FDA-Public Use
  Company Number: IL-NOVOPROD-256099

PATIENT
  Age: 1 Year
  Sex: Male

DRUGS (1)
  1. NOVOSEVEN [Suspect]
     Indication: HAEMORRHAGE
     Dosage: 1 X 1.2 MG, SINGLE
     Dates: start: 20060811, end: 20060811

REACTIONS (2)
  - DEATH [None]
  - HAEMORRHAGE [None]
